FAERS Safety Report 6149955-8 (Version None)
Quarter: 2009Q2

REPORT INFORMATION
  Report Type: 
  Country: None (occurrence: None)
  Receive Date: 20090409
  Receipt Date: 20090331
  Transmission Date: 20091009
  Serious: Yes (Death)
  Sender: FDA-Public Use
  Company Number: A0765304A

PATIENT
  Age: 42 Year
  Sex: Male
  Weight: 88.2 kg

DRUGS (6)
  1. WELLBUTRIN [Suspect]
     Indication: DEPRESSION
     Route: 048
  2. BUPROPION HYDROCHLORIDE [Suspect]
     Indication: DEPRESSION
  3. SKELAXIN [Concomitant]
  4. MUSCLE RELAXANT [Concomitant]
  5. SEROQUEL [Concomitant]
  6. CEFUROXIME [Concomitant]

REACTIONS (8)
  - ANXIETY [None]
  - COMPLETED SUICIDE [None]
  - CONFUSIONAL STATE [None]
  - HAEMORRHAGE [None]
  - INJURY [None]
  - PRODUCT COUNTERFEIT [None]
  - PRODUCT QUALITY ISSUE [None]
  - UNEVALUABLE EVENT [None]
